FAERS Safety Report 10447981 (Version 4)
Quarter: 2015Q1

REPORT INFORMATION
  Report Type: Spontaneous
  Country: US (occurrence: US)
  Receive Date: 20140911
  Receipt Date: 20150316
  Transmission Date: 20150720
  Serious: Yes (Hospitalization, Other)
  Sender: FDA-Public Use
  Company Number: US-009507513-1409USA004454

PATIENT
  Sex: Male
  Weight: 92.97 kg

DRUGS (1)
  1. JANUVIA [Suspect]
     Active Substance: SITAGLIPTIN PHOSPHATE
     Indication: TYPE 2 DIABETES MELLITUS
     Dosage: 100 MG, QD
     Route: 048
     Dates: start: 20091130

REACTIONS (21)
  - Spinal fusion surgery [Unknown]
  - Cerebral infarction [Unknown]
  - Coronary artery disease [Unknown]
  - Cataract [Unknown]
  - Diverticulum intestinal [Unknown]
  - Reactive gastropathy [Unknown]
  - Adenocarcinoma pancreas [Not Recovered/Not Resolved]
  - Pancreatectomy [Unknown]
  - Arthroscopy [Unknown]
  - Glycosylated haemoglobin increased [Unknown]
  - Insulinoma [Unknown]
  - Sinus headache [Unknown]
  - Abnormal loss of weight [Unknown]
  - Diabetes mellitus [Unknown]
  - Nausea [Unknown]
  - Splenectomy [Unknown]
  - Vitamin D deficiency [Unknown]
  - Oedema peripheral [Unknown]
  - Renal impairment [Unknown]
  - Benign prostatic hyperplasia [Unknown]
  - Cardiac failure [Unknown]

NARRATIVE: CASE EVENT DATE: 201311
